FAERS Safety Report 6640191-5 (Version None)
Quarter: 2010Q1

REPORT INFORMATION
  Report Type: 
  Country: None (occurrence: None)
  Receive Date: 20100318
  Receipt Date: 20100308
  Transmission Date: 20100710
  Serious: Yes (Other)
  Sender: FDA-Public Use
  Company Number: FR-ROCHE-689968

PATIENT
  Sex: Male

DRUGS (4)
  1. AVASTIN [Suspect]
     Indication: RECTAL CANCER METASTATIC
     Route: 042
     Dates: start: 20081027
  2. ELOXATIN [Suspect]
     Indication: RECTAL CANCER METASTATIC
     Route: 042
     Dates: start: 20081027
  3. ELOXATIN [Suspect]
     Dosage: DOSE DECREASED
     Route: 042
     Dates: end: 20090216
  4. FLUOROURACIL [Concomitant]

REACTIONS (1)
  - NEUROTOXICITY [None]
